FAERS Safety Report 4793919-3 (Version None)
Quarter: 2005Q4

REPORT INFORMATION
  Report Type: 
  Country: None (occurrence: None)
  Receive Date: 20051006
  Receipt Date: 20050816
  Transmission Date: 20060501
  Serious: Yes (Hospitalization)
  Sender: FDA-Public Use
  Company Number: 2005BI013162

PATIENT
  Age: 52 Year
  Sex: Female

DRUGS (7)
  1. AVONEX [Suspect]
     Indication: MULTIPLE SCLEROSIS
     Dosage: 30 UG; QW; IM
     Route: 030
     Dates: start: 20011017
  2. PROVIGIL [Concomitant]
  3. AMBIEN [Concomitant]
  4. INDERAL [Concomitant]
  5. ZANAFLEX [Concomitant]
  6. KLONOPIN [Concomitant]
  7. LEXAPRO [Concomitant]

REACTIONS (1)
  - THROMBOSIS [None]
